FAERS Safety Report 6748748-8 (Version None)
Quarter: 2010Q2

REPORT INFORMATION
  Report Type: 
  Country: None (occurrence: None)
  Receive Date: 20100601
  Receipt Date: 20100518
  Transmission Date: 20101027
  Serious: Yes (Other)
  Sender: FDA-Public Use
  Company Number: PHHY2010US32584

PATIENT
  Sex: Male

DRUGS (13)
  1. DIOVAN HCT [Suspect]
  2. AERODIOL [Concomitant]
  3. PREVACID [Concomitant]
  4. AVODART [Concomitant]
  5. FLOMAX [Concomitant]
  6. VITAMIN D3 [Concomitant]
  7. LOVAZA [Concomitant]
  8. LYCOPENE [Concomitant]
  9. GREEN TEA EXTRACT [Concomitant]
  10. TOMATO EXTRACT [Concomitant]
  11. MELATONIN [Concomitant]
  12. QUERCETIN [Concomitant]
  13. GLUCOSAMINE SULFATE [Concomitant]

REACTIONS (5)
  - DIZZINESS [None]
  - HYPOTENSION [None]
  - PROSTATE CANCER [None]
  - RADIOTHERAPY [None]
  - WRONG TECHNIQUE IN DRUG USAGE PROCESS [None]
